FAERS Safety Report 6169385-2 (Version None)
Quarter: 2009Q2

REPORT INFORMATION
  Report Type: 
  Country: None (occurrence: None)
  Receive Date: 20090424
  Receipt Date: 20090409
  Transmission Date: 20091009
  Serious: Yes (Hospitalization)
  Sender: FDA-Public Use
  Company Number: 2009S1006401

PATIENT
  Age: 54 Year
  Sex: Female

DRUGS (4)
  1. SPIRACTIN (SPIRONOLACTONE) (25 MG) [Suspect]
     Indication: PRIMARY HYPERALDOSTERONISM
     Dosage: 25 MG; DAILY; ORAL, 12.5 MG; DAILY; ORAL
     Route: 048
     Dates: start: 20090301, end: 20090329
  2. SPIRACTIN (SPIRONOLACTONE) (25 MG) [Suspect]
     Indication: PRIMARY HYPERALDOSTERONISM
     Dosage: 25 MG; DAILY; ORAL, 12.5 MG; DAILY; ORAL
     Route: 048
     Dates: start: 20090330
  3. ALPHAPRESS (HYDRALAZINE) [Suspect]
     Indication: HYPERTENSION
     Dosage: ORAL
     Route: 048
     Dates: start: 20080101, end: 20090329
  4. ISOPTIN [Suspect]
     Indication: HYPERTENSION
     Dates: start: 20080101, end: 20090329

REACTIONS (8)
  - ABDOMINAL PAIN UPPER [None]
  - CONFUSIONAL STATE [None]
  - FATIGUE [None]
  - HYPERHIDROSIS [None]
  - HYPOTENSION [None]
  - INCORRECT DOSE ADMINISTERED [None]
  - NAUSEA [None]
  - PARAESTHESIA [None]
